FAERS Safety Report 8892447 (Version 3)
Quarter: 2012Q4

REPORT INFORMATION
  Report Type: 
  Country: JP (occurrence: JP)
  Receive Date: 20121107
  Receipt Date: 20121205
  Transmission Date: 20130627
  Serious: Yes (Hospitalization)
  Sender: FDA-Public Use
  Company Number: JP-GLAXOSMITHKLINE-B0842324A

PATIENT
  Age: 11 Year
  Sex: Female
  Weight: 15 kg

DRUGS (8)
  1. LAMICTAL [Suspect]
     Indication: EPILEPSY
     Dosage: 25MG Per day
     Route: 048
     Dates: start: 20121011, end: 20121024
  2. LAMICTAL [Suspect]
     Indication: EPILEPSY
     Dosage: 50MG Per day
     Route: 048
     Dates: start: 20121025, end: 20121101
  3. MYSTAN [Concomitant]
     Indication: EPILEPSY
     Route: 048
  4. EXCEGRAN [Concomitant]
     Indication: EPILEPSY
     Dosage: 35MG Twice per day
     Route: 048
  5. HYSERENIN [Concomitant]
     Indication: EPILEPSY
     Dosage: 162.5MG Twice per day
     Route: 048
  6. L-CARTIN [Concomitant]
     Indication: EPILEPSY
     Dosage: 100MG Twice per day
     Route: 048
  7. ROZEREM [Concomitant]
     Indication: EPILEPSY
     Dosage: 4MG Per day
     Route: 048
  8. CALCITONIN [Concomitant]
     Route: 065

REACTIONS (17)
  - Stevens-Johnson syndrome [Recovered/Resolved]
  - Punctate keratitis [Recovered/Resolved]
  - Rash [Recovering/Resolving]
  - Pyrexia [Unknown]
  - Cheilitis [Unknown]
  - Lip swelling [Unknown]
  - Ocular hyperaemia [Unknown]
  - Erythema of eyelid [Unknown]
  - Eyelid erosion [Unknown]
  - Rash maculo-papular [Unknown]
  - Erythema [Unknown]
  - Erythema [Unknown]
  - White blood cell count decreased [Unknown]
  - Neutrophil count decreased [Unknown]
  - Lymphocyte count increased [Unknown]
  - Drug dispensing error [Unknown]
  - Overdose [Unknown]
